FAERS Safety Report 10051781 (Version 1)
Quarter: 2014Q2

REPORT INFORMATION
  Report Type: Report from Study
  Country: MX (occurrence: MX)
  Receive Date: 20140402
  Receipt Date: 20140402
  Transmission Date: 20141212
  Serious: Yes (Death)
  Sender: FDA-Public Use
  Company Number: MX-ROCHE-1376151

PATIENT
  Age: 35 Year
  Sex: Male
  Weight: 45 kg

DRUGS (3)
  1. AVASTIN [Suspect]
     Indication: COLON CANCER METASTATIC
     Route: 042
     Dates: start: 20131030
  2. XELODA [Suspect]
     Indication: COLON CANCER METASTATIC
     Route: 048
  3. OXALIPLATIN [Concomitant]
     Indication: COLON CANCER METASTATIC
     Route: 042

REACTIONS (1)
  - Disease progression [Fatal]
